FAERS Safety Report 6973248-X (Version None)
Quarter: 2010Q3

REPORT INFORMATION
  Report Type: 
  Country: None (occurrence: None)
  Receive Date: 20100909
  Receipt Date: 20100830
  Transmission Date: 20110219
  Serious: Yes (Other)
  Sender: FDA-Public Use
  Company Number: TN-BAXTER-2010BH022921

PATIENT
  Age: 50 Year
  Sex: Male

DRUGS (3)
  1. VINORELBINE TARTRATE [Suspect]
     Indication: LUNG CARCINOMA CELL TYPE UNSPECIFIED STAGE IV
     Route: 042
  2. CISPLATIN [Concomitant]
     Indication: LUNG CARCINOMA CELL TYPE UNSPECIFIED STAGE IV
     Route: 065
  3. RADIOTHERAPY [Concomitant]

REACTIONS (1)
  - VIITH NERVE PARALYSIS [None]
